FAERS Safety Report 4548652-X (Version None)
Quarter: 2005Q1

REPORT INFORMATION
  Report Type: 
  Country: None (occurrence: None)
  Receive Date: 20050107
  Receipt Date: 20050107
  Transmission Date: 20050727
  Serious: No
  Sender: FDA-Public Use
  Company Number: None

PATIENT
  Age: 91 Year
  Sex: Male

DRUGS (2)
  1. VANCOMYCIN [Suspect]
     Indication: CELLULITIS
     Dosage: 500 MG IV QD
     Route: 042
     Dates: start: 20050104
  2. MERRENA 1 GM (ZENECA [Concomitant]

REACTIONS (1)
  - RASH [None]
